FAERS Safety Report 5030260-8 (Version None)
Quarter: 2006Q2

REPORT INFORMATION
  Report Type: 
  Country: None (occurrence: None)
  Receive Date: 20060614
  Receipt Date: 20060529
  Transmission Date: 20061013
  Serious: Yes (Disabling)
  Sender: FDA-Public Use
  Company Number: DSA_28258_2006

PATIENT
  Age: 84 Year
  Sex: Female

DRUGS (6)
  1. ENALAPRIL MALEATE [Suspect]
     Dosage: DF PO
     Route: 048
     Dates: start: 20050915
  2. CLOPIDOGREL BISULFATE [Concomitant]
  3. FUROSEMIDE [Concomitant]
  4. LANREOTIDE ACETATE [Concomitant]
  5. SOTALOL HCL [Concomitant]
  6. ZOLPIDEM TARTRATE [Concomitant]

REACTIONS (3)
  - COMPUTERISED TOMOGRAM ABNORMAL [None]
  - EXOPHTHALMOS [None]
  - MUSCLE HYPERTROPHY [None]
